FAERS Safety Report 6725314-1 (Version None)
Quarter: 2010Q2

REPORT INFORMATION
  Report Type: 
  Country: None (occurrence: None)
  Receive Date: 20100514
  Receipt Date: 20100513
  Transmission Date: 20101027
  Serious: Yes (Death, Hospitalization)
  Sender: FDA-Public Use
  Company Number: IT-BRISTOL-MYERS SQUIBB COMPANY-15019532

PATIENT
  Age: 56 Year
  Sex: Male

DRUGS (5)
  1. COUMADIN [Suspect]
     Indication: ATRIAL FIBRILLATION
     Dosage: SUSPENDED ON 11-FEB-2010
     Route: 048
     Dates: start: 20091201
  2. AMLODIPINE [Concomitant]
  3. ATORVASTATIN [Concomitant]
  4. EPOGEN [Concomitant]
  5. GRANULOCYTE MACROPHAGE CSF [Concomitant]

REACTIONS (4)
  - GASTROINTESTINAL NECROSIS [None]
  - INTESTINAL PERFORATION [None]
  - PERITONITIS [None]
  - SKIN NECROSIS [None]
